FAERS Safety Report 8447917-9 (Version None)
Quarter: 2012Q2

REPORT INFORMATION
  Report Type: 
  Country: None (occurrence: None)
  Receive Date: 20120619
  Receipt Date: 20120611
  Transmission Date: 20120825
  Serious: Yes (Hospitalization, Other)
  Sender: FDA-Public Use
  Company Number: PHHY2012BR051325

PATIENT
  Sex: Female

DRUGS (14)
  1. ASSERT [Suspect]
     Dosage: UNK
  2. OMEPRAZOLE [Suspect]
     Dosage: UNK
  3. CARDIZEM [Suspect]
     Dosage: 60 MG, UNK
  4. SIMVASTATIN [Suspect]
     Dosage: UNK
  5. ASPIRIN [Suspect]
     Dosage: UNK
  6. CARVEDILOL [Suspect]
     Dosage: UNK
  7. CLOPIDOGREL [Suspect]
     Dosage: UNK
  8. ZANTAC [Suspect]
     Dosage: UNK
  9. DIOVAN HCT [Suspect]
     Indication: HYPERTENSION
     Dosage: 1 TABLET PER DAY
  10. METFORMIN HCL [Suspect]
     Dosage: UNK
  11. ATORVASTATIN CALCIUM [Suspect]
     Dosage: UNK
  12. LOSARTAN POTASSIUM [Suspect]
     Indication: BLOOD PRESSURE
     Dosage: UNK
  13. AMATO [Suspect]
     Dosage: UNK
  14. ENALAPRIL MALEATE [Suspect]
     Dosage: UNK

REACTIONS (12)
  - DYSPNOEA [None]
  - BLOOD PRESSURE INADEQUATELY CONTROLLED [None]
  - DRY MOUTH [None]
  - FATIGUE [None]
  - MALAISE [None]
  - CHEST PAIN [None]
  - DIABETES MELLITUS [None]
  - VENOUS OCCLUSION [None]
  - BLOOD CHOLESTEROL INCREASED [None]
  - SPEECH DISORDER [None]
  - OSTEOARTHRITIS [None]
  - INSOMNIA [None]
